FAERS Safety Report 7881983-4 (Version None)
Quarter: 2011Q4

REPORT INFORMATION
  Report Type: 
  Country: None (occurrence: None)
  Receive Date: 20111101
  Receipt Date: 20110606
  Transmission Date: 20120403
  Serious: No
  Sender: FDA-Public Use
  Company Number: US-AMGEN-USASP2011029165

PATIENT
  Age: 44 Year
  Sex: Female

DRUGS (2)
  1. ENBREL [Suspect]
     Indication: PSORIATIC ARTHROPATHY
     Dosage: 50 MG, 2 TIMES/WK
     Dates: start: 20110322
  2. METHOTREXATE [Concomitant]

REACTIONS (6)
  - INJECTION SITE REACTION [None]
  - INJECTION SITE PRURITUS [None]
  - INJECTION SITE VESICLES [None]
  - INJECTION SITE ERYTHEMA [None]
  - INJECTION SITE INDURATION [None]
  - INJECTION SITE WARMTH [None]
